FAERS Safety Report 16056856 (Version 3)
Quarter: 2020Q4

REPORT INFORMATION
  Report Type: Spontaneous
  Country: HN (occurrence: HN)
  Receive Date: 20190311
  Receipt Date: 20201230
  Transmission Date: 20210113
  Serious: Yes (Death, Other)
  Sender: FDA-Public Use
  Company Number: PHHY2019HN054465

PATIENT
  Age: 49 Year
  Sex: Male

DRUGS (3)
  1. FILGRASTIM [Suspect]
     Active Substance: FILGRASTIM
     Indication: PRODUCT USED FOR UNKNOWN INDICATION
     Dosage: 300 MG, (DAILY FOR 3 DAYS)
     Route: 058
  2. GLIVEC [Suspect]
     Active Substance: IMATINIB MESYLATE
     Indication: CHRONIC MYELOID LEUKAEMIA
     Dosage: 400 MG, UNK
     Route: 065
     Dates: start: 20171213
  3. LEVOFLOXACIN. [Suspect]
     Active Substance: LEVOFLOXACIN
     Indication: PRODUCT USED FOR UNKNOWN INDICATION
     Dosage: 750 MG, UNK (FOR 7 DAYS)
     Route: 048

REACTIONS (10)
  - White blood cell count increased [Unknown]
  - Leukopenia [Unknown]
  - Pyrexia [Fatal]
  - Neutrophil count decreased [Unknown]
  - Anaemia [Unknown]
  - Platelet count decreased [Unknown]
  - Sepsis [Fatal]
  - General physical health deterioration [Unknown]
  - Cytogenetic analysis abnormal [Unknown]
  - Platelet count increased [Unknown]

NARRATIVE: CASE EVENT DATE: 20181123
